FAERS Safety Report 7994766-1 (Version None)
Quarter: 2011Q4

REPORT INFORMATION
  Report Type: 
  Country: None (occurrence: None)
  Receive Date: 20111220
  Receipt Date: 20111215
  Transmission Date: 20120403
  Serious: Yes (Hospitalization, Other)
  Sender: FDA-Public Use
  Company Number: US-PFIZER INC-2011305494

PATIENT
  Sex: Male

DRUGS (1)
  1. CHANTIX [Suspect]
     Dosage: UNK
     Dates: start: 20070401

REACTIONS (9)
  - DEPRESSION [None]
  - PSYCHOTIC DISORDER [None]
  - ANXIETY [None]
  - DELUSION [None]
  - PARANOIA [None]
  - ABNORMAL BEHAVIOUR [None]
  - SUICIDE ATTEMPT [None]
  - MANIA [None]
  - ABNORMAL DREAMS [None]
